FAERS Safety Report 10501154 (Version 1)
Quarter: 2014Q4

REPORT INFORMATION
  Report Type: Report from Study
  Country: BR (occurrence: BR)
  Receive Date: 20141007
  Receipt Date: 20141007
  Transmission Date: 20150528
  Serious: Yes (Other)
  Sender: FDA-Public Use
  Company Number: PHHY2014BR130159

PATIENT
  Sex: Male
  Weight: 95 kg

DRUGS (1)
  1. DIOVAN HCT [Suspect]
     Active Substance: HYDROCHLOROTHIAZIDE\VALSARTAN
     Indication: HYPERTENSION
     Dosage: 1 DF, DAILY
     Route: 048

REACTIONS (4)
  - Anxiety [Recovering/Resolving]
  - Atrial fibrillation [Recovering/Resolving]
  - Cardiac disorder [Recovering/Resolving]
  - Nervousness [Recovering/Resolving]
